FAERS Safety Report 4598976-5 (Version None)
Quarter: 2005Q1

REPORT INFORMATION
  Report Type: 
  Country: None (occurrence: None)
  Receive Date: 20050304
  Receipt Date: 20050118
  Transmission Date: 20050727
  Serious: Yes (Hospitalization)
  Sender: FDA-Public Use
  Company Number: FR-MERCK-0501FRA00054

PATIENT
  Age: 83 Year
  Sex: Female

DRUGS (6)
  1. FOSAMAX [Suspect]
     Indication: OSTEITIS DEFORMANS
     Route: 048
     Dates: start: 20040910, end: 20041123
  2. DONEPEZIL HYDROCHLORIDE [Suspect]
     Indication: DEMENTIA ALZHEIMER'S TYPE
     Route: 048
     Dates: start: 20040910
  3. MEMANTINE HYDROCHLORIDE [Suspect]
     Indication: DEMENTIA ALZHEIMER'S TYPE
     Route: 048
     Dates: start: 20040910
  4. PERICIAZINE [Suspect]
     Route: 048
     Dates: start: 20040910
  5. MOCLOBEMIDE [Suspect]
     Indication: DEPRESSION
     Route: 048
     Dates: start: 20040910, end: 20041123
  6. INSULIN LISPRO [Concomitant]
     Indication: DIABETES MELLITUS
     Route: 058
     Dates: start: 20040310

REACTIONS (1)
  - ANAEMIA [None]
